FAERS Safety Report 11910651 (Version 4)
Quarter: 2016Q1

REPORT INFORMATION
  Report Type: Spontaneous
  Country: CZ (occurrence: CZ)
  Receive Date: 20160112
  Receipt Date: 20160120
  Transmission Date: 20160526
  Serious: Yes (Death, Hospitalization, Other)
  Sender: FDA-Public Use
  Company Number: PHHY2016CZ002168

PATIENT
  Age: 21 Year
  Sex: Male

DRUGS (8)
  1. MICAFUNGIN [Suspect]
     Active Substance: MICAFUNGIN
     Indication: ANTIFUNGAL TREATMENT
     Dosage: 200 MG, QD
     Route: 065
     Dates: start: 20120824
  2. AMIKACIN [Suspect]
     Active Substance: AMIKACIN
     Indication: ANTIBIOTIC THERAPY
     Dosage: 1 G, QD
     Route: 065
  3. POSACONAZOLE [Suspect]
     Active Substance: POSACONAZOLE
     Indication: ANTIBIOTIC PROPHYLAXIS
     Dosage: 200 MG, TID
     Route: 065
  4. CICLOSPORIN [Suspect]
     Active Substance: CYCLOSPORINE
     Indication: APLASTIC ANAEMIA
     Dosage: 5 MG/KG, QD
     Route: 065
     Dates: start: 20120718
  5. ANTITHYMOCYTE IMMUNOGLOBULIN [Suspect]
     Active Substance: THYMOCYTE IMMUNE GLOBULIN NOS
     Indication: APLASTIC ANAEMIA
     Dosage: 3.5 MG/KG, QD
     Route: 065
     Dates: start: 20120718
  6. CIPROFLOXACIN. [Suspect]
     Active Substance: CIPROFLOXACIN
     Indication: ANTIBIOTIC PROPHYLAXIS
     Dosage: 500 MG, BID
     Route: 065
  7. CEFEPIME [Suspect]
     Active Substance: CEFEPIME HYDROCHLORIDE
     Indication: ANTIBIOTIC THERAPY
     Dosage: 2 G, TID
     Route: 065
  8. SULFAMETHOXAZOLE AND TRIMETHOPRIM [Suspect]
     Active Substance: SULFAMETHOXAZOLE\TRIMETHOPRIM
     Indication: ANTIBIOTIC PROPHYLAXIS
     Dosage: 480 MG, QD
     Route: 065

REACTIONS (10)
  - Multiple organ dysfunction syndrome [Fatal]
  - Fusarium infection [Unknown]
  - Rash maculo-papular [Unknown]
  - Sinusitis [Recovering/Resolving]
  - Aspergillus infection [Unknown]
  - Headache [Unknown]
  - Product use issue [Unknown]
  - Febrile neutropenia [Recovered/Resolved]
  - General physical health deterioration [Recovered/Resolved with Sequelae]
  - Skin lesion [Recovering/Resolving]

NARRATIVE: CASE EVENT DATE: 20120820
